FAERS Safety Report 5156351-9 (Version None)
Quarter: 2006Q4

REPORT INFORMATION
  Report Type: 
  Country: None (occurrence: None)
  Receive Date: 20061122
  Receipt Date: 20061115
  Transmission Date: 20070319
  Serious: Yes (Death)
  Sender: FDA-Public Use
  Company Number: IT-MERCK-0611USA05258

PATIENT

DRUGS (1)
  1. CUPRIMINE [Suspect]
     Indication: HEPATO-LENTICULAR DEGENERATION
     Route: 048

REACTIONS (3)
  - ADVERSE EVENT [None]
  - CENTRAL PONTINE MYELINOLYSIS [None]
  - LIVER TRANSPLANT [None]
